FAERS Safety Report 12379393 (Version 1)
Quarter: 2016Q2

REPORT INFORMATION
  Report Type: Spontaneous
  Country: US (occurrence: US)
  Receive Date: 20160517
  Receipt Date: 20160517
  Transmission Date: 20160815
  Serious: No
  Sender: FDA-Public Use
  Company Number: US-RELYPSA-RLY2016000196

PATIENT

DRUGS (31)
  1. GABAPENTIN. [Concomitant]
     Active Substance: GABAPENTIN
  2. CYMBALTA [Concomitant]
     Active Substance: DULOXETINE HYDROCHLORIDE
  3. CLONIDINE HCL [Concomitant]
     Active Substance: CLONIDINE HYDROCHLORIDE
  4. GLYBURIDE. [Concomitant]
     Active Substance: GLYBURIDE
  5. MYRBETRIQ [Concomitant]
     Active Substance: MIRABEGRON
  6. LOSARTAN. [Concomitant]
     Active Substance: LOSARTAN
  7. LISINOPRIL. [Concomitant]
     Active Substance: LISINOPRIL
  8. HYDRALAZINE HCL [Concomitant]
     Active Substance: HYDRALAZINE HYDROCHLORIDE
  9. DIAZEPAM. [Concomitant]
     Active Substance: DIAZEPAM
  10. CHROMIUM [Concomitant]
     Active Substance: CHROMIC CHLORIDE\CHROMIUM
  11. TRAZODONE HYDROCHLORIDE. [Concomitant]
     Active Substance: TRAZODONE HYDROCHLORIDE
  12. ACETYL L-CARNITINE                 /00949201/ [Concomitant]
  13. TRILIPIX [Concomitant]
     Active Substance: FENOFIBRIC ACID
  14. SODIUM BICARBONATE. [Concomitant]
     Active Substance: SODIUM BICARBONATE
  15. OXYBUTYNIN CHLORIDE. [Concomitant]
     Active Substance: OXYBUTYNIN CHLORIDE
  16. MULTIVITAMIN                       /00097801/ [Concomitant]
     Active Substance: VITAMINS
  17. MELOXICAM. [Concomitant]
     Active Substance: MELOXICAM
  18. ALPHA LIPOIC ACID [Concomitant]
     Active Substance: .ALPHA.-LIPOIC ACID
  19. PROBIOTIC                          /06395501/ [Concomitant]
     Active Substance: BIFIDOBACTERIUM ANIMALIS SUBSP. LACTIS
  20. POTASSIUM [Concomitant]
     Active Substance: POTASSIUM
  21. LATUDA [Concomitant]
     Active Substance: LURASIDONE HYDROCHLORIDE
  22. DEPLIN [Concomitant]
     Active Substance: LEVOMEFOLATE CALCIUM
  23. LIPITOR [Concomitant]
     Active Substance: ATORVASTATIN CALCIUM
  24. BUPROPION HCL [Concomitant]
     Active Substance: BUPROPION HYDROCHLORIDE
  25. TOPROL XL [Concomitant]
     Active Substance: METOPROLOL SUCCINATE
  26. RENVELA [Concomitant]
     Active Substance: SEVELAMER CARBONATE
  27. CORTISONE ACETATE. [Concomitant]
     Active Substance: CORTISONE ACETATE
  28. VELTASSA [Suspect]
     Active Substance: PATIROMER
     Indication: HYPERKALAEMIA
     Dosage: 8.4 G, QD
  29. VITAMIN D3 [Concomitant]
     Active Substance: CHOLECALCIFEROL
  30. LOVAZA [Concomitant]
     Active Substance: OMEGA-3-ACID ETHYL ESTERS
  31. TIZANIDINE HCL [Concomitant]
     Active Substance: TIZANIDINE HYDROCHLORIDE

REACTIONS (3)
  - Fatigue [Unknown]
  - Asthenia [Unknown]
  - Adverse event [Unknown]
